FAERS Safety Report 6211172-0 (Version None)
Quarter: 2009Q2

REPORT INFORMATION
  Report Type: 
  Country: None (occurrence: None)
  Receive Date: 20090602
  Receipt Date: 20090526
  Transmission Date: 20091009
  Serious: Yes (Hospitalization)
  Sender: FDA-Public Use
  Company Number: FR-ROCHE-634917

PATIENT
  Sex: Female

DRUGS (10)
  1. RIVOTRIL [Suspect]
     Indication: EPILEPSY
     Route: 048
     Dates: start: 20080908, end: 20081015
  2. AVLOCARDYL [Suspect]
     Indication: HYPERTENSION
     Dosage: DOSE REPORTED AS: 1 DOSE.
     Route: 048
     Dates: start: 20080908, end: 20081015
  3. IXPRIM [Suspect]
     Indication: PAIN
     Route: 048
  4. VOLTAREN [Suspect]
     Indication: DRUG USE FOR UNKNOWN INDICATION
     Route: 048
  5. TRAMADOL HCL [Suspect]
     Indication: PAIN
     Route: 048
     Dates: start: 20080908, end: 20080916
  6. DAFALGAN [Suspect]
     Indication: PAIN
     Route: 048
     Dates: start: 20080908, end: 20080930
  7. BI-PROFENID [Suspect]
     Indication: NEURALGIA
     Dosage: DOSAGE: TWO DOSES.
     Route: 048
     Dates: start: 20080908, end: 20080916
  8. PROFENID [Suspect]
     Indication: NEURALGIA
     Route: 042
     Dates: start: 20080908, end: 20080909
  9. MOPRAL [Suspect]
     Indication: DRUG USE FOR UNKNOWN INDICATION
     Dosage: DOSAGE: ONE DOSE.
     Route: 048
     Dates: start: 20080908, end: 20080930
  10. MYOLASTAN [Suspect]
     Indication: DRUG USE FOR UNKNOWN INDICATION
     Route: 048
     Dates: start: 20080908, end: 20081015

REACTIONS (1)
  - HEPATITIS CHOLESTATIC [None]
